FAERS Safety Report 7960323-6 (Version None)
Quarter: 2011Q4

REPORT INFORMATION
  Report Type: 
  Country: None (occurrence: None)
  Receive Date: 20111206
  Receipt Date: 20111201
  Transmission Date: 20120403
  Serious: Yes (Death, Hospitalization, Other)
  Sender: FDA-Public Use
  Company Number: US-ABBOTT-11P-163-0858071-00

PATIENT
  Sex: Female

DRUGS (16)
  1. MERCAPTOPURINE [Concomitant]
     Indication: CROHN'S DISEASE
  2. SYNTHROID [Concomitant]
     Indication: HYPOTHYROIDISM
  3. LORAZEPAM [Concomitant]
     Indication: ANXIETY
     Dates: end: 20110916
  4. ASPIRIN [Concomitant]
     Indication: PRODUCT USED FOR UNKNOWN INDICATION
     Dates: end: 20110916
  5. ADDERALL 5 [Concomitant]
     Indication: PRODUCT USED FOR UNKNOWN INDICATION
     Dates: end: 20110916
  6. HUMIRA [Suspect]
     Indication: CROHN'S DISEASE
     Dates: start: 20090709, end: 20110916
  7. BUPROPION HCL [Concomitant]
     Indication: DEPRESSION
  8. COLACEDAL [Concomitant]
     Indication: PRODUCT USED FOR UNKNOWN INDICATION
     Dates: end: 20110916
  9. INDERAL [Concomitant]
     Indication: PRODUCT USED FOR UNKNOWN INDICATION
     Dates: end: 20110916
  10. LANSOPRAZOLE [Concomitant]
     Indication: GASTROOESOPHAGEAL REFLUX DISEASE
  11. MULTI-VITAMINS [Concomitant]
     Indication: PRODUCT USED FOR UNKNOWN INDICATION
     Dates: end: 20110916
  12. ACIPHEX [Concomitant]
     Indication: PRODUCT USED FOR UNKNOWN INDICATION
     Dates: end: 20110916
  13. MERCAPTOPURINE [Concomitant]
     Indication: PRODUCT USED FOR UNKNOWN INDICATION
     Dates: end: 20110916
  14. UNKNOWN MEDICATION [Concomitant]
     Indication: PRODUCT USED FOR UNKNOWN INDICATION
     Dates: end: 20110916
  15. SEROQUEL [Concomitant]
     Indication: PRODUCT USED FOR UNKNOWN INDICATION
     Dates: end: 20110916
  16. PAXIL [Concomitant]
     Indication: PRODUCT USED FOR UNKNOWN INDICATION
     Dates: end: 20110916

REACTIONS (14)
  - LIP AND/OR ORAL CAVITY CANCER STAGE IV [None]
  - RESPIRATORY FAILURE [None]
  - TONGUE NEOPLASM MALIGNANT STAGE UNSPECIFIED [None]
  - CHOKING [None]
  - BRAIN DEATH [None]
  - STOMATITIS [None]
  - CARDIO-RESPIRATORY ARREST [None]
  - LOCAL SWELLING [None]
  - HEAD AND NECK CANCER [None]
  - DYSPNOEA [None]
  - SWELLING FACE [None]
  - LIP AND/OR ORAL CAVITY CANCER [None]
  - OBSTRUCTIVE AIRWAYS DISORDER [None]
  - TUMOUR RUPTURE [None]
